FAERS Safety Report 10403036 (Version 1)
Quarter: 2014Q3

REPORT INFORMATION
  Report Type: Spontaneous
  Country: US (occurrence: US)
  Receive Date: 20140822
  Receipt Date: 20140822
  Transmission Date: 20150326
  Serious: Yes (Hospitalization)
  Sender: FDA-Public Use
  Company Number: US-B.I. PHARMACEUTICALS,INC./RIDGEFIELD-2014-BI-38402BP

PATIENT
  Age: 76 Year
  Sex: Female
  Weight: 75.1 kg

DRUGS (7)
  1. PRADAXA [Suspect]
     Active Substance: DABIGATRAN ETEXILATE MESYLATE
     Indication: ATRIAL FIBRILLATION
     Dosage: 300 MG
     Route: 048
     Dates: end: 20120720
  2. BACTROBAN [Concomitant]
     Active Substance: MUPIROCIN\MUPIROCIN CALCIUM
     Dosage: DOSE PER APPLICATION: 2%, 1 APPLICATION; DAILY DOSE: 6%, 3 APPLICATIONS
     Route: 061
  3. METOPROLOL [Concomitant]
     Active Substance: METOPROLOL
     Dosage: 50 MG
     Route: 048
  4. PREDNISONE. [Concomitant]
     Active Substance: PREDNISONE
     Dosage: 20 MG
     Route: 048
  5. RYTHMOL [Concomitant]
     Active Substance: PROPAFENONE HYDROCHLORIDE
     Dosage: 450 MG
     Route: 048
  6. PROPAFENONE. [Concomitant]
     Active Substance: PROPAFENONE
     Dosage: 450 MG
     Route: 048
  7. PRAVASTATIN [Concomitant]
     Active Substance: PRAVASTATIN\PRAVASTATIN SODIUM
     Dosage: 20 MG
     Route: 048

REACTIONS (1)
  - Subdural haematoma [Recovered/Resolved]

NARRATIVE: CASE EVENT DATE: 20120720
